FAERS Safety Report 8550500-8 (Version None)
Quarter: 2012Q3

REPORT INFORMATION
  Report Type: 
  Country: None (occurrence: None)
  Receive Date: 20120730
  Receipt Date: 20120720
  Transmission Date: 20120928
  Serious: Yes (Other)
  Sender: FDA-Public Use
  Company Number: US-ASTRAZENECA-2012SE51638

PATIENT
  Age: 65 Year
  Sex: Female

DRUGS (1)
  1. NEXIUM [Suspect]
     Route: 048

REACTIONS (6)
  - NEOPLASM MALIGNANT [None]
  - RESPIRATORY DISORDER [None]
  - OEDEMA [None]
  - SKELETAL INJURY [None]
  - RIB FRACTURE [None]
  - WEIGHT DECREASED [None]
